FAERS Safety Report 10420944 (Version 1)
Quarter: 2014Q3

REPORT INFORMATION
  Report Type: Spontaneous
  Country: US (occurrence: None)
  Receive Date: 20140714
  Receipt Date: 20140714
  Transmission Date: 20150326
  Serious: Yes (Other)
  Sender: FDA-Public Use
  Company Number: 2014US003319

PATIENT
  Age: 30 Year
  Sex: Male

DRUGS (3)
  1. PONATINIB (AP24534) TABLET [Suspect]
     Active Substance: PONATINIB
     Indication: PRODUCT USED FOR UNKNOWN INDICATION
     Dosage: 1 TAB
     Route: 048
  2. AMBIEN [Concomitant]
     Active Substance: ZOLPIDEM TARTRATE
  3. PERCOCET (OXYCODONE HYDROCHLORIDE, PARACETAMOL) [Concomitant]

REACTIONS (1)
  - Liver function test abnormal [None]
